FAERS Safety Report 23555176 (Version 3)
Quarter: 2024Q1

REPORT INFORMATION
  Report Type: Spontaneous
  Country: NZ (occurrence: NZ)
  Receive Date: 20240222
  Receipt Date: 20240315
  Transmission Date: 20240409
  Serious: Yes (Death, Other)
  Sender: FDA-Public Use
  Company Number: NZ-MYLANLABS-2024M1016453

PATIENT
  Age: 86 Year
  Sex: Female
  Weight: 59 kg

DRUGS (11)
  1. CLOZARIL [Suspect]
     Active Substance: CLOZAPINE
     Indication: Schizophrenia
     Dosage: 100 MILLIGRAM, QD (25MG MANE. 75MG NOCTE)
     Route: 048
     Dates: start: 20231114, end: 20240219
  2. CLOZARIL [Suspect]
     Active Substance: CLOZAPINE
     Indication: Psychotic disorder
  3. CLOZARIL [Suspect]
     Active Substance: CLOZAPINE
     Indication: Dementia with Lewy bodies
  4. MIDAZOLAM [Concomitant]
     Active Substance: MIDAZOLAM
     Dosage: VARIABLE DOSE
     Route: 065
  5. MORPHINE [Concomitant]
     Active Substance: MORPHINE
     Dosage: VARIABLE DOSE
     Route: 065
  6. CLONAZEPAM [Concomitant]
     Active Substance: CLONAZEPAM
     Dosage: 1 MILLIGRAM, TID
     Route: 065
  7. CLONAZEPAM [Concomitant]
     Active Substance: CLONAZEPAM
     Dosage: 1.5 MILLIGRAM, QD (NOCTE)
     Route: 065
  8. VENLAFAXINE [Concomitant]
     Active Substance: VENLAFAXINE HYDROCHLORIDE
     Dosage: 225 MILLIGRAM, QD (DAILY)
     Route: 065
  9. MIRTAZAPINE [Concomitant]
     Active Substance: MIRTAZAPINE
     Dosage: 30 MILLIGRAM, QD (NOCTE)
     Route: 065
  10. LEVOTHYROXINE [Concomitant]
     Active Substance: LEVOTHYROXINE\LEVOTHYROXINE SODIUM
     Dosage: UNK
     Route: 065
  11. APOMORPHINE [Concomitant]
     Active Substance: APOMORPHINE
     Dosage: UNK
     Route: 065

REACTIONS (5)
  - Asthenia [Fatal]
  - Multimorbidity [Fatal]
  - Terminal state [Unknown]
  - Dysphagia [Unknown]
  - Off label use [Unknown]

NARRATIVE: CASE EVENT DATE: 20231114
